FAERS Safety Report 12408715 (Version 1)
Quarter: 2016Q2

REPORT INFORMATION
  Report Type: Spontaneous
  Country: US (occurrence: US)
  Receive Date: 20160526
  Receipt Date: 20160526
  Transmission Date: 20160815
  Serious: No
  Sender: FDA-Public Use
  Company Number: US-PERRIGO-15US006631

PATIENT
  Age: 56 Year
  Sex: Female
  Weight: 79.37 kg

DRUGS (2)
  1. ROXICODONE [Concomitant]
     Active Substance: OXYCODONE HYDROCHLORIDE
     Indication: FIBROMYALGIA
     Dosage: UNK
     Route: 065
     Dates: start: 2012
  2. MICONAZOLE 3 COMBINATION PACK [Suspect]
     Active Substance: MICONAZOLE NITRATE
     Indication: URINARY TRACT INFECTION
     Dosage: 200 MG, QD AT BEDTIME
     Route: 067
     Dates: start: 20150621, end: 20150623

REACTIONS (6)
  - Off label use [Recovered/Resolved]
  - Vulvovaginal burning sensation [Recovering/Resolving]
  - Pain [Unknown]
  - Vulvovaginal discomfort [Recovering/Resolving]
  - Pruritus [Recovered/Resolved]
  - Urticaria [Not Recovered/Not Resolved]

NARRATIVE: CASE EVENT DATE: 201506
